FAERS Safety Report 8607515-0 (Version None)
Quarter: 2012Q3

REPORT INFORMATION
  Report Type: 
  Country: None (occurrence: None)
  Receive Date: 20120821
  Receipt Date: 20120814
  Transmission Date: 20120928
  Serious: Yes (Other)
  Sender: FDA-Public Use
  Company Number: AU-UCBSA-063712

PATIENT

DRUGS (3)
  1. VIMPAT [Suspect]
     Indication: PARTIAL SEIZURES
     Dates: start: 20120701
  2. ZYPREXA [Concomitant]
     Indication: PSYCHOTIC DISORDER
     Route: 048
  3. CLOZAPINE [Suspect]
     Indication: PSYCHOTIC DISORDER
     Dates: start: 20120801

REACTIONS (1)
  - NEUROLEPTIC MALIGNANT SYNDROME [None]
